FAERS Safety Report 11923840 (Version 3)
Quarter: 2017Q3

REPORT INFORMATION
  Report Type: Spontaneous
  Country: US (occurrence: US)
  Receive Date: 20160118
  Receipt Date: 20170721
  Transmission Date: 20171127
  Serious: Yes (Hospitalization, Other)
  Sender: FDA-Public Use
  Company Number: US-AUROBINDO-AUR-APL-2016-00138

PATIENT
  Age: 50 Year
  Sex: Male

DRUGS (7)
  1. BACLOFEN. [Concomitant]
     Active Substance: BACLOFEN
     Indication: PRODUCT USED FOR UNKNOWN INDICATION
     Route: 065
  2. EMTRICITABINE [Concomitant]
     Active Substance: EMTRICITABINE
     Indication: PRODUCT USED FOR UNKNOWN INDICATION
     Route: 065
  3. RISPERIDONE 0.5MG [Interacting]
     Active Substance: RISPERIDONE
     Dosage: 3 MG, TWO TIMES A DAY
     Route: 065
  4. TENOVIRAL [Concomitant]
     Active Substance: TENOFOVIR DISOPROXIL
     Indication: PRODUCT USED FOR UNKNOWN INDICATION
     Route: 065
  5. RISPERIDONE 0.5MG [Suspect]
     Active Substance: RISPERIDONE
     Indication: PARANOIA
     Dosage: 0.5 MG, TWO TIMES A DAY
     Route: 065
  6. RITONAVIR. [Interacting]
     Active Substance: RITONAVIR
     Indication: PRODUCT USED FOR UNKNOWN INDICATION
     Route: 065
  7. DARUNAVIR [Concomitant]
     Active Substance: DARUNAVIR
     Indication: PRODUCT USED FOR UNKNOWN INDICATION
     Route: 065

REACTIONS (3)
  - Swelling [Recovered/Resolved]
  - Drug interaction [Unknown]
  - Angioedema [Recovered/Resolved]
